FAERS Safety Report 9060117 (Version 1)
Quarter: 2013Q1

REPORT INFORMATION
  Report Type: Spontaneous
  Country: US (occurrence: None)
  Receive Date: 20130118
  Receipt Date: 20130118
  Transmission Date: 20140127
  Serious: Yes (Death)
  Sender: FDA-Public Use
  Company Number: AUR-APL-2013-00491

PATIENT
  Age: 56 Year
  Sex: Female

DRUGS (9)
  1. CITALOPRAM (CITALOPRAM) [Suspect]
  2. LISINOPRIL [Suspect]
  3. GABAPENTIN (GABAPENTIN) [Suspect]
  4. CYCLOBENZAPRINE [Suspect]
  5. ZOLPIDEM (ZOLPIDEM) [Suspect]
  6. SUMATRIPTAN [Suspect]
  7. NAPROXEN [Suspect]
  8. ACETAMINOPHEN/BUTALBITAL/CAFFEINE [Suspect]
  9. CLONAZEPAM [Suspect]

REACTIONS (2)
  - Toxicity to various agents [None]
  - Completed suicide [None]
